FAERS Safety Report 5353063-3 (Version None)
Quarter: 2007Q2

REPORT INFORMATION
  Report Type: 
  Country: None (occurrence: None)
  Receive Date: 20070606
  Receipt Date: 20070523
  Transmission Date: 20071010
  Serious: Yes (Death)
  Sender: FDA-Public Use
  Company Number: URSO-2007-128

PATIENT
  Age: 61 Year
  Sex: Female

DRUGS (2)
  1. URSO 250 [Suspect]
     Indication: AUTOIMMUNE HEPATITIS
     Dosage: 300 MG, ORAL
     Route: 048
  2. URSO 250 [Suspect]
     Indication: BILIARY CIRRHOSIS PRIMARY
     Dosage: 300 MG, ORAL
     Route: 048

REACTIONS (1)
  - HEPATIC FAILURE [None]
